FAERS Safety Report 7416279-8 (Version None)
Quarter: 2011Q2

REPORT INFORMATION
  Report Type: 
  Country: None (occurrence: None)
  Receive Date: 20110414
  Receipt Date: 20110405
  Transmission Date: 20111010
  Serious: No
  Sender: FDA-Public Use
  Company Number: CA-ELI_LILLY_AND_COMPANY-CA201104001462

PATIENT
  Sex: Male

DRUGS (2)
  1. CIALIS [Suspect]
     Indication: PENIS DISORDER
     Dosage: 20 MG, 3/W
     Dates: start: 20110221, end: 20110228
  2. CIALIS [Suspect]
     Dosage: 20 MG, PRN
     Dates: start: 20110401

REACTIONS (3)
  - VISION BLURRED [None]
  - OFF LABEL USE [None]
  - INAPPROPRIATE SCHEDULE OF DRUG ADMINISTRATION [None]
